FAERS Safety Report 25920019 (Version 1)
Quarter: 2025Q4

REPORT INFORMATION
  Report Type: Spontaneous
  Country: US (occurrence: None)
  Receive Date: 20251010
  Receipt Date: 20251010
  Transmission Date: 20260118
  Serious: Yes (Hospitalization)
  Sender: FDA-CTU
  Company Number: None

PATIENT
  Sex: Female

DRUGS (1)
  1. VONVENDI [Suspect]
     Active Substance: VON WILLEBRAND FACTOR (RECOMBINANT)
     Indication: Von Willebrand^s disease
     Dosage: FREQUENCY : AS NEEDED;?STRENGTH: 1300
     Route: 042
     Dates: start: 20230213

REACTIONS (4)
  - Diabetes mellitus [None]
  - Nephrolithiasis [None]
  - Urinary tract infection [None]
  - Gastrointestinal haemorrhage [None]
